FAERS Safety Report 22371192 (Version 2)
Quarter: 2024Q1

REPORT INFORMATION
  Report Type: Report from Study
  Country: CN (occurrence: CN)
  Receive Date: 20230526
  Receipt Date: 20240229
  Transmission Date: 20240410
  Serious: Yes (Other)
  Sender: FDA-Public Use
  Company Number: CN-TAKEDA-2023TUS050446

PATIENT
  Age: 38 Year
  Sex: Female
  Weight: 69 kg

DRUGS (17)
  1. VEDOLIZUMAB [Suspect]
     Active Substance: VEDOLIZUMAB
     Indication: Colitis ulcerative
     Dosage: 300 MILLIGRAM
     Route: 042
     Dates: start: 20220827
  2. DEXAMETHASONE SODIUM PHOSPHATE [Concomitant]
     Active Substance: DEXAMETHASONE PHOSPHATE\DEXAMETHASONE SODIUM PHOSPHATE
     Indication: Prophylaxis
     Dosage: 5 MILLIGRAM, QD
     Route: 042
     Dates: start: 20220827, end: 20220827
  3. DEXAMETHASONE SODIUM PHOSPHATE [Concomitant]
     Active Substance: DEXAMETHASONE PHOSPHATE\DEXAMETHASONE SODIUM PHOSPHATE
     Dosage: 5 MILLIGRAM, QD
     Route: 042
     Dates: start: 20220909, end: 20220909
  4. DEXAMETHASONE SODIUM PHOSPHATE [Concomitant]
     Active Substance: DEXAMETHASONE PHOSPHATE\DEXAMETHASONE SODIUM PHOSPHATE
     Dosage: 5 MILLIGRAM, QD
     Route: 042
     Dates: start: 20221009, end: 20221009
  5. DEXAMETHASONE SODIUM PHOSPHATE [Concomitant]
     Active Substance: DEXAMETHASONE PHOSPHATE\DEXAMETHASONE SODIUM PHOSPHATE
     Dosage: 5 MILLIGRAM, QD
     Route: 042
     Dates: start: 20221206, end: 20221207
  6. DEXAMETHASONE SODIUM PHOSPHATE [Concomitant]
     Active Substance: DEXAMETHASONE PHOSPHATE\DEXAMETHASONE SODIUM PHOSPHATE
     Dosage: 5 MILLIGRAM, QD
     Route: 042
     Dates: start: 20230131, end: 20230131
  7. DEXAMETHASONE SODIUM PHOSPHATE [Concomitant]
     Active Substance: DEXAMETHASONE PHOSPHATE\DEXAMETHASONE SODIUM PHOSPHATE
     Dosage: 5 MILLIGRAM, QD
     Route: 042
     Dates: start: 20230327, end: 20230327
  8. DEXAMETHASONE SODIUM PHOSPHATE [Concomitant]
     Active Substance: DEXAMETHASONE PHOSPHATE\DEXAMETHASONE SODIUM PHOSPHATE
     Dosage: 5 MILLIGRAM, QD
     Route: 042
     Dates: start: 20230523, end: 20230523
  9. DEXAMETHASONE SODIUM PHOSPHATE [Concomitant]
     Active Substance: DEXAMETHASONE PHOSPHATE\DEXAMETHASONE SODIUM PHOSPHATE
     Dosage: 5 MILLIGRAM, QD
     Route: 042
     Dates: start: 20230713, end: 20230713
  10. DEXAMETHASONE SODIUM PHOSPHATE [Concomitant]
     Active Substance: DEXAMETHASONE PHOSPHATE\DEXAMETHASONE SODIUM PHOSPHATE
     Dosage: 5 MILLIGRAM, QD
     Route: 042
     Dates: start: 20230907, end: 20230907
  11. FAMOTIDINE [Concomitant]
     Active Substance: FAMOTIDINE
     Dosage: 20 MILLIGRAM, BID
     Route: 048
     Dates: start: 20230131
  12. HYDROTALCITE [Concomitant]
     Active Substance: HYDROTALCITE
     Dosage: 1 GRAM, BID
     Route: 048
     Dates: start: 20230131
  13. RIFAMPIN [Concomitant]
     Active Substance: RIFAMPIN
     Indication: Latent tuberculosis
     Dosage: 0.45 GRAM
     Route: 048
     Dates: start: 20220827
  14. VITAMIN E [Concomitant]
     Active Substance: .ALPHA.-TOCOPHEROL
     Indication: Urticaria
     Dosage: UNK
     Route: 003
     Dates: start: 20221202
  15. MESALAMINE [Concomitant]
     Active Substance: MESALAMINE
     Indication: Inflammatory bowel disease
     Dosage: 1 GRAM, QID
     Route: 048
     Dates: start: 20220823
  16. MESALAMINE [Concomitant]
     Active Substance: MESALAMINE
     Dosage: UNK UNK, QD
     Route: 054
     Dates: start: 20220908, end: 20220909
  17. BACILLUS LICHENIFORMIS CAPSULE,LIVE [Concomitant]
     Indication: Inflammatory bowel disease
     Dosage: 0.5 GRAM, TID
     Route: 048
     Dates: start: 20230523

REACTIONS (2)
  - Hypokalaemia [Recovered/Resolved]
  - COVID-19 [Recovered/Resolved]

NARRATIVE: CASE EVENT DATE: 20220908
